FAERS Safety Report 5009332-X (Version None)
Quarter: 2006Q2

REPORT INFORMATION
  Report Type: 
  Country: None (occurrence: None)
  Receive Date: 20060522
  Receipt Date: 20060510
  Transmission Date: 20061013
  Serious: Yes (Other)
  Sender: FDA-Public Use
  Company Number: 2005087902

PATIENT
  Age: 63 Year
  Sex: Female
  Weight: 54.4316 kg

DRUGS (4)
  1. DIFLUCAN [Suspect]
     Indication: FUNGAL INFECTION
     Dosage: 150 MG (150 MG, QD), ORAL
     Route: 048
     Dates: end: 20040801
  2. ESTROGENS SOL/INJ [Concomitant]
  3. ESTROGEN (PROGESTERONE AND TESTOSTERONE COMBINATION (ALL OTHER THERAPE [Concomitant]
  4. UNKNOWN THYROID MEDICATION (ALL OTHER THERAPEUTIC PRODUCTS) [Concomitant]

REACTIONS (7)
  - ANXIETY [None]
  - ASTHENIA [None]
  - CHEST DISCOMFORT [None]
  - FATIGUE [None]
  - INSOMNIA [None]
  - LETHARGY [None]
  - PALPITATIONS [None]
